FAERS Safety Report 9624579 (Version 2)
Quarter: 2014Q1

REPORT INFORMATION
  Report Type: Report from Study
  Country: US (occurrence: US)
  Receive Date: 20131015
  Receipt Date: 20140218
  Transmission Date: 20141002
  Serious: Yes (Hospitalization)
  Sender: FDA-Public Use
  Company Number: US-SA-2013SA098569

PATIENT
  Age: 46 Year
  Sex: Female
  Weight: 74.7 kg

DRUGS (5)
  1. CLOLAR [Suspect]
     Indication: BONE MARROW CONDITIONING REGIMEN
     Dosage: X5 DAYS
     Route: 042
  2. BUSULFAN [Suspect]
     Indication: BONE MARROW CONDITIONING REGIMEN
     Dosage: X4 DAYS
     Route: 042
  3. BACTRIM [Concomitant]
     Dosage: 160-800 MG
  4. PROGRAF [Concomitant]
  5. DELTASONE [Concomitant]

REACTIONS (3)
  - Graft versus host disease in skin [Unknown]
  - Acute myeloid leukaemia recurrent [Unknown]
  - Cytomegalovirus infection [Unknown]
